FAERS Safety Report 8834855 (Version 1)
Quarter: 2012Q4

REPORT INFORMATION
  Report Type: 
  Country: BR (occurrence: BR)
  Receive Date: 20121011
  Receipt Date: 20121011
  Transmission Date: 20130627
  Serious: Yes (Other)
  Sender: FDA-Public Use
  Company Number: BR-AMGEN-BRASP2012063493

PATIENT
  Age: 51 Year
  Sex: Female
  Weight: 63 kg

DRUGS (4)
  1. ENBREL [Suspect]
     Indication: RHEUMATOID ARTHRITIS
     Dosage: 25mg, 2x/week
     Route: 058
     Dates: start: 20100731
  2. ENBREL [Suspect]
     Dosage: 50 mg, 1x/week
     Route: 058
     Dates: start: 201109, end: 201203
  3. CAPTOPRIL [Concomitant]
     Indication: HYPERTENSION
     Dosage: 25 mg (1 unspecified if capsule or tablet), 1x/day
  4. PREDNISONE [Concomitant]

REACTIONS (11)
  - Hypertensive crisis [Unknown]
  - Feeling abnormal [Unknown]
  - Headache [Unknown]
  - Nausea [Unknown]
  - Heart rate increased [Unknown]
  - Vomiting [Unknown]
  - Blood pressure increased [Unknown]
  - Pruritus generalised [Unknown]
  - Rash [Unknown]
  - Decreased appetite [Unknown]
  - Weight decreased [Unknown]
